FAERS Safety Report 11012334 (Version 1)
Quarter: 2015Q2

REPORT INFORMATION
  Report Type: Spontaneous
  Country: US (occurrence: None)
  Receive Date: 20150407
  Receipt Date: 20150407
  Transmission Date: 20150821
  Serious: Yes (Hospitalization, Other)
  Sender: FDA-Public Use
  Company Number: LH201400262

PATIENT
  Age: 28 Year
  Sex: Female

DRUGS (6)
  1. MAKENA [Suspect]
     Active Substance: HYDROXYPROGESTERONE CAPROATE
     Indication: PREMATURE DELIVERY
     Route: 030
     Dates: start: 201405, end: 201408
  2. GLYBURIDE (GLIGENCLAMIDE) [Concomitant]
  3. METHYLDOPA (METHYLDOPA) [Concomitant]
     Active Substance: METHYLDOPA
  4. PROCARDIA [Concomitant]
     Active Substance: NIFEDIPINE
  5. MAKENA [Suspect]
     Active Substance: HYDROXYPROGESTERONE CAPROATE
     Indication: OFF LABEL USE
     Route: 030
     Dates: start: 201405, end: 201408
  6. INSULIN (INSULIN) [Concomitant]
     Active Substance: INSULIN NOS

REACTIONS (2)
  - Off label use [None]
  - Pre-eclampsia [None]

NARRATIVE: CASE EVENT DATE: 201405
